FAERS Safety Report 5010151-9 (Version None)
Quarter: 2006Q2

REPORT INFORMATION
  Report Type: 
  Country: None (occurrence: None)
  Receive Date: 20060404
  Receipt Date: 20051121
  Transmission Date: 20061013
  Serious: No
  Sender: FDA-Public Use
  Company Number: US200511002269

PATIENT
  Age: 30 Year
  Sex: Female

DRUGS (4)
  1. CYMBALTA [Suspect]
     Indication: FIBROMYALGIA
     Dosage: SEE IMAGE
     Route: 048
     Dates: start: 20051117, end: 20051117
  2. CYMBALTA [Suspect]
     Indication: FIBROMYALGIA
     Dosage: SEE IMAGE
     Route: 048
     Dates: start: 20051118
  3. SINEQUAN [Concomitant]
  4. XANAX /USA/(ALPRAZOLAM) [Concomitant]

REACTIONS (2)
  - FEELING ABNORMAL [None]
  - INSOMNIA [None]
